FAERS Safety Report 9848684 (Version 2)
Quarter: 2014Q1

REPORT INFORMATION
  Report Type: Report from Study
  Country: FR (occurrence: FR)
  Receive Date: 20140128
  Receipt Date: 20140130
  Transmission Date: 20141002
  Serious: Yes (Hospitalization)
  Sender: FDA-Public Use
  Company Number: FR-ROCHE-1335506

PATIENT
  Sex: Male

DRUGS (46)
  1. RITUXIMAB [Suspect]
     Indication: RHEUMATOID ARTHRITIS
     Route: 041
     Dates: start: 20070703
  2. RITUXIMAB [Suspect]
     Route: 041
     Dates: start: 20070717
  3. RITUXIMAB [Suspect]
     Route: 041
     Dates: start: 20071228
  4. RITUXIMAB [Suspect]
     Route: 041
     Dates: start: 20080115
  5. RITUXIMAB [Suspect]
     Route: 041
     Dates: start: 20080801
  6. RITUXIMAB [Suspect]
     Route: 041
     Dates: start: 20080813
  7. RITUXIMAB [Suspect]
     Route: 041
     Dates: start: 20090306
  8. RITUXIMAB [Suspect]
     Route: 041
     Dates: start: 20090317
  9. RITUXIMAB [Suspect]
     Route: 041
     Dates: start: 20090930
  10. RITUXIMAB [Suspect]
     Route: 041
     Dates: start: 20091014
  11. RITUXIMAB [Suspect]
     Route: 041
     Dates: start: 20100422
  12. RITUXIMAB [Suspect]
     Route: 041
     Dates: start: 20100506
  13. RITUXIMAB [Suspect]
     Route: 041
     Dates: start: 20101117
  14. RITUXIMAB [Suspect]
     Route: 041
     Dates: start: 20110512
  15. RITUXIMAB [Suspect]
     Route: 041
     Dates: start: 20110526
  16. RITUXIMAB [Suspect]
     Route: 041
     Dates: start: 20111114
  17. RITUXIMAB [Suspect]
     Route: 041
     Dates: start: 20111128
  18. RITUXIMAB [Suspect]
     Route: 041
     Dates: start: 20120514
  19. RITUXIMAB [Suspect]
     Route: 041
     Dates: start: 20120529
  20. RITUXIMAB [Suspect]
     Route: 041
     Dates: start: 20121127
  21. RITUXIMAB [Suspect]
     Route: 041
     Dates: start: 20121210
  22. RITUXIMAB [Suspect]
     Route: 041
     Dates: start: 20130611
  23. RITUXIMAB [Suspect]
     Route: 041
     Dates: start: 20130625
  24. SALAZOPYRINE [Concomitant]
  25. METHOTREXATE [Concomitant]
     Route: 065
     Dates: start: 20071228
  26. LEFLUNOMIDE [Concomitant]
  27. CYCLOSPORINE [Concomitant]
  28. REMICADE [Concomitant]
  29. ENBREL [Concomitant]
  30. HUMIRA [Concomitant]
  31. CORTANCYL [Concomitant]
     Route: 065
     Dates: start: 20070703
  32. CORTANCYL [Concomitant]
     Route: 065
     Dates: start: 20071228
  33. CORTANCYL [Concomitant]
     Route: 065
     Dates: start: 20080801
  34. CORTANCYL [Concomitant]
     Route: 065
     Dates: start: 20090306
  35. CORTANCYL [Concomitant]
     Route: 065
     Dates: start: 20090930
  36. CORTANCYL [Concomitant]
     Route: 065
     Dates: start: 20100422
  37. CORTANCYL [Concomitant]
     Route: 065
     Dates: start: 20101117
  38. CORTANCYL [Concomitant]
     Route: 065
     Dates: start: 20110526
  39. CORTANCYL [Concomitant]
     Route: 065
     Dates: start: 20111114
  40. CORTANCYL [Concomitant]
     Route: 065
     Dates: start: 20120514
  41. CORTANCYL [Concomitant]
     Route: 065
     Dates: start: 20121127
  42. CORTANCYL [Concomitant]
     Route: 065
     Dates: start: 20130611
  43. OMEPRAZOLE [Concomitant]
  44. ZELITREX [Concomitant]
  45. LEXOMIL [Concomitant]
  46. PRITOR (FRANCE) [Concomitant]

REACTIONS (22)
  - Bronchopneumonia [Recovered/Resolved]
  - Rectal haemorrhage [Recovered/Resolved]
  - Seborrhoeic dermatitis [Unknown]
  - Hypersensitivity [Recovered/Resolved]
  - Headache [Recovered/Resolved]
  - Asthenia [Recovered/Resolved]
  - Seborrhoeic dermatitis [Recovered/Resolved]
  - Oral candidiasis [Recovered/Resolved]
  - Tonsillitis [Recovered/Resolved]
  - Bronchitis [Recovered/Resolved]
  - Large intestine polyp [Unknown]
  - Rectal polyp [Unknown]
  - Rash pruritic [Recovered/Resolved]
  - Laryngitis [Recovered/Resolved]
  - Dyspepsia [Not Recovered/Not Resolved]
  - Pyrexia [Not Recovered/Not Resolved]
  - Skin plaque [Not Recovered/Not Resolved]
  - Abdominal pain [Recovering/Resolving]
  - Diarrhoea [Recovering/Resolving]
  - General physical health deterioration [Not Recovered/Not Resolved]
  - Rash [Unknown]
  - Raynaud^s phenomenon [Recovered/Resolved]
